FAERS Safety Report 19055444 (Version 1)
Quarter: 2021Q1

REPORT INFORMATION
  Report Type: Spontaneous
  Country: US (occurrence: US)
  Receive Date: 20210325
  Receipt Date: 20210325
  Transmission Date: 20210420
  Serious: No
  Sender: FDA-Public Use
  Company Number: US-TEVA-2021-US-1894162

PATIENT
  Sex: Female
  Weight: 91.08 kg

DRUGS (11)
  1. AUSTEDO [Suspect]
     Active Substance: DEUTETRABENAZINE
     Indication: TARDIVE DYSKINESIA
     Dosage: 36 MILLIGRAM DAILY; 6 MG THREE TABLETS
     Route: 048
     Dates: start: 201901
  2. UBIQUINOL [Concomitant]
     Active Substance: UBIQUINOL
     Dosage: 100 MG
  3. VITAMIN C [Concomitant]
     Active Substance: ASCORBIC ACID
     Dosage: 1000 MG
  4. COENZYME Q10 [Concomitant]
     Active Substance: DIETARY SUPPLEMENT\UBIDECARENONE
     Dosage: 50 MG
  5. VITAMIN D3 [Concomitant]
     Active Substance: CHOLECALCIFEROL
     Dosage: 10 MCG
  6. MAGNESIUM [Concomitant]
     Active Substance: MAGNESIUM
     Dosage: 200 MG
  7. CALCIUM [Concomitant]
     Active Substance: CALCIUM
     Dosage: 600 MG
  8. CRESTOR [Concomitant]
     Active Substance: ROSUVASTATIN CALCIUM
     Dosage: 10 MG
  9. POTASSIUM GLUCONATE [Concomitant]
     Active Substance: POTASSIUM GLUCONATE
     Dosage: 2.5 MEQ TABLET
  10. VITAMIN K [Concomitant]
     Active Substance: PHYTONADIONE
     Dosage: 100 MCG
  11. ZONISAMIDE. [Concomitant]
     Active Substance: ZONISAMIDE
     Dosage: 25 MG

REACTIONS (3)
  - Depression [Unknown]
  - Myalgia [Unknown]
  - Myopathy [Unknown]
